FAERS Safety Report 5119183-3 (Version None)
Quarter: 2006Q4

REPORT INFORMATION
  Report Type: 
  Country: None (occurrence: None)
  Receive Date: 20061003
  Receipt Date: 20060922
  Transmission Date: 20070319
  Serious: Yes (Hospitalization)
  Sender: FDA-Public Use
  Company Number: ES-JNJFOC-20060905264

PATIENT
  Sex: Male

DRUGS (2)
  1. REMICADE [Suspect]
     Indication: COLITIS
     Route: 042
  2. IMUREL [Concomitant]
     Route: 065

REACTIONS (1)
  - CYTOMEGALOVIRUS INFECTION [None]
